FAERS Safety Report 13982430 (Version 2)
Quarter: 2017Q4

REPORT INFORMATION
  Report Type: Report from Study
  Country: None (occurrence: US)
  Receive Date: 20170918
  Receipt Date: 20171103
  Transmission Date: 20180321
  Serious: Yes (Hospitalization, Other)
  Sender: FDA-Public Use
  Company Number: US-ABBVIE-17K-163-2100975-00

PATIENT
  Sex: Female

DRUGS (2)
  1. HUMIRA [Suspect]
     Active Substance: ADALIMUMAB
     Indication: ANKYLOSING SPONDYLITIS
     Route: 058
     Dates: start: 20161107, end: 20170618
  2. HUMIRA [Suspect]
     Active Substance: ADALIMUMAB
     Indication: PSORIATIC ARTHROPATHY
     Route: 058
     Dates: start: 20170903

REACTIONS (20)
  - Swelling [Unknown]
  - General physical health deterioration [Unknown]
  - Nodule [Unknown]
  - Pain in extremity [Unknown]
  - Loss of personal independence in daily activities [Unknown]
  - Nasopharyngitis [Unknown]
  - Nasopharyngitis [Recovered/Resolved]
  - Inguinal hernia [Recovering/Resolving]
  - Cough [Unknown]
  - Nasal congestion [Recovered/Resolved]
  - Pain [Unknown]
  - Mobility decreased [Unknown]
  - Abdominal hernia [Recovering/Resolving]
  - Umbilical hernia [Recovering/Resolving]
  - Arthralgia [Unknown]
  - Psoriasis [Unknown]
  - Incision site complication [Unknown]
  - Neck pain [Unknown]
  - Fatigue [Unknown]
  - Back pain [Unknown]

NARRATIVE: CASE EVENT DATE: 2016
